FAERS Safety Report 7848660-7 (Version None)
Quarter: 2011Q4

REPORT INFORMATION
  Report Type: 
  Country: None (occurrence: None)
  Receive Date: 20111026
  Receipt Date: 20111018
  Transmission Date: 20120403
  Serious: Yes (Hospitalization)
  Sender: FDA-Public Use
  Company Number: US-BIOGENIDEC-2011BI003259

PATIENT
  Age: 48 Year
  Sex: Female

DRUGS (2)
  1. AVONEX [Suspect]
     Indication: MULTIPLE SCLEROSIS
     Route: 030
     Dates: start: 20101010, end: 20101201
  2. AVONEX [Suspect]
     Route: 030
     Dates: start: 20110112

REACTIONS (12)
  - ABDOMINAL DISTENSION [None]
  - HEPATIC PAIN [None]
  - HEPATIC INFECTION [None]
  - PANCREATIC DISORDER [None]
  - EPISTAXIS [None]
  - PANCREAS INFECTION [None]
  - SWELLING [None]
  - BOWEL MOVEMENT IRREGULARITY [None]
  - ABDOMINAL PAIN [None]
  - PNEUMONIA [None]
  - HAEMORRHAGE [None]
  - LIVER INDURATION [None]
